FAERS Safety Report 8334434-X (Version None)
Quarter: 2012Q2

REPORT INFORMATION
  Report Type: 
  Country: None (occurrence: None)
  Receive Date: 20120503
  Receipt Date: 20111118
  Transmission Date: 20120825
  Serious: No
  Sender: FDA-Public Use
  Company Number: US-BAUSCH-2011BL008170

PATIENT
  Age: 70 Year
  Sex: Female

DRUGS (5)
  1. LOTEMAX [Suspect]
     Indication: POSTOPERATIVE CARE
     Route: 047
     Dates: start: 20111117, end: 20111117
  2. ERYTHROCIN 1% [Concomitant]
  3. ISTALOL [Concomitant]
  4. GENTEAL [Concomitant]
  5. RESTASIS [Concomitant]

REACTIONS (5)
  - DRUG HYPERSENSITIVITY [None]
  - INCREASED UPPER AIRWAY SECRETION [None]
  - RHINORRHOEA [None]
  - SNEEZING [None]
  - NASAL CONGESTION [None]
